FAERS Safety Report 6610519-0 (Version None)
Quarter: 2010Q1

REPORT INFORMATION
  Report Type: 
  Country: None (occurrence: None)
  Receive Date: 20100302
  Receipt Date: 20100219
  Transmission Date: 20100710
  Serious: Yes (Hospitalization)
  Sender: FDA-Public Use
  Company Number: FR-B.I. PHARMACEUTICALS,INC./RIDGEFIELD-2010-FF-00163FF

PATIENT
  Sex: Female

DRUGS (5)
  1. MOBIC [Suspect]
     Dosage: ONE INJECTION DAILY
     Route: 030
  2. KETOPROFEN [Suspect]
     Indication: BACK PAIN
     Dosage: 7 INJECTIONS TWICE DAILY
     Route: 030
  3. MYOLASTAN [Concomitant]
  4. MOPRAL [Concomitant]
  5. DIANTALVIC [Concomitant]

REACTIONS (3)
  - COLITIS ISCHAEMIC [None]
  - RECTAL HAEMORRHAGE [None]
  - VOMITING [None]
